FAERS Safety Report 23295336 (Version 1)
Quarter: 2023Q4

REPORT INFORMATION
  Report Type: Spontaneous
  Country: US (occurrence: None)
  Receive Date: 20231214
  Receipt Date: 20231214
  Transmission Date: 20240110
  Serious: No
  Sender: FDA-Public Use
  Company Number: 2023A263616

PATIENT
  Sex: Male

DRUGS (1)
  1. BREZTRI [Suspect]
     Active Substance: BUDESONIDE\FORMOTEROL\GLYCOPYRROLATE
     Indication: Chronic obstructive pulmonary disease
     Dosage: 160/9MCG 4.8 MCG160UG/INHAL TWO TIMES A DAY
     Route: 055

REACTIONS (6)
  - Productive cough [Unknown]
  - Wrong technique in device usage process [Unknown]
  - Product use complaint [Unknown]
  - Device use issue [Unknown]
  - Product use in unapproved indication [Unknown]
  - Device defective [Unknown]
